FAERS Safety Report 11641870 (Version 1)
Quarter: 2015Q4

REPORT INFORMATION
  Report Type: Spontaneous
  Country: US (occurrence: US)
  Receive Date: 20151019
  Receipt Date: 20151019
  Transmission Date: 20160304
  Serious: Yes (Other)
  Sender: FDA-Public Use
  Company Number: US-UNITED THERAPEUTICS-UNT-2015-012717

PATIENT
  Age: 70 Year
  Sex: Female
  Weight: 50.34 kg

DRUGS (3)
  1. TYVASO [Suspect]
     Active Substance: TREPROSTINIL
     Indication: PULMONARY ARTERIAL HYPERTENSION
     Dosage: 18-54 MICROGRAMS, QID
     Dates: start: 20150929, end: 20151009
  2. REVATIO [Concomitant]
     Active Substance: SILDENAFIL CITRATE
     Indication: PRODUCT USED FOR UNKNOWN INDICATION
  3. TYVASO [Suspect]
     Active Substance: TREPROSTINIL
     Dosage: 18-54 MICROGRAMS, QID
     Dates: start: 20151005

REACTIONS (10)
  - Back pain [Unknown]
  - Dyspnoea [Unknown]
  - Headache [Unknown]
  - Haematoma [Unknown]
  - Tongue oedema [Unknown]
  - Fatigue [Unknown]
  - Drug intolerance [Unknown]
  - Cough [Unknown]
  - International normalised ratio increased [Unknown]
  - Dizziness [Unknown]

NARRATIVE: CASE EVENT DATE: 201510
